FAERS Safety Report 10285568 (Version 3)
Quarter: 2014Q3

REPORT INFORMATION
  Report Type: Report from Study
  Country: US (occurrence: US)
  Receive Date: 20140709
  Receipt Date: 20140904
  Transmission Date: 20150326
  Serious: Yes (Other)
  Sender: FDA-Public Use
  Company Number: US-BIOGENIDEC-2008BI031120

PATIENT
  Age: 0 Day
  Sex: Female

DRUGS (1)
  1. AVONEX [Suspect]
     Active Substance: INTERFERON BETA-1A
     Indication: MATERNAL EXPOSURE TIMING UNSPECIFIED
     Route: 064
     Dates: start: 20010101, end: 200412

REACTIONS (5)
  - Foetal hypokinesia [Recovered/Resolved]
  - Umbilical cord prolapse [Recovered/Resolved]
  - Foetal malpresentation [Recovered/Resolved]
  - Umbilical cord compression [Recovered/Resolved]
  - Birth trauma [Unknown]

NARRATIVE: CASE EVENT DATE: 20051004
